FAERS Safety Report 8909007 (Version 1)
Quarter: 2012Q4

REPORT INFORMATION
  Report Type: 
  Country: GB (occurrence: GB)
  Receive Date: 20121114
  Receipt Date: 20121114
  Transmission Date: 20130627
  Serious: Yes (Disabling)
  Sender: FDA-Public Use
  Company Number: GB-TARO-2012P1064699

PATIENT
  Age: 51 Year
  Sex: Male
  Weight: 110.67 kg

DRUGS (5)
  1. CARBAMAZEPINE [Suspect]
     Indication: CONVULSION
  2. CARBAMAZEPINE [Suspect]
     Indication: BIPOLAR DISORDER
  3. CARBAMAZEPINE [Suspect]
     Indication: CONVULSION
  4. CARBAMAZEPINE [Suspect]
     Indication: BIPOLAR DISORDER
  5. ESCITALOPRAM [Concomitant]

REACTIONS (3)
  - Activities of daily living impaired [Unknown]
  - Apathy [Unknown]
  - Product quality issue [Unknown]
